FAERS Safety Report 15760295 (Version 3)
Quarter: 2019Q2

REPORT INFORMATION
  Report Type: Spontaneous
  Country: JP (occurrence: JP)
  Receive Date: 20181226
  Receipt Date: 20190530
  Transmission Date: 20190711
  Serious: Yes (Other)
  Sender: FDA-Public Use
  Company Number: JP-PFIZER INC-2018522590

PATIENT
  Age: 64 Year
  Sex: Female

DRUGS (5)
  1. LOXONIN [Suspect]
     Active Substance: LOXOPROFEN SODIUM
     Dosage: 100 MG, 1X/DAY (10 X 14 CM)
     Dates: start: 20180702, end: 20180904
  2. MONTELUKAST [Suspect]
     Active Substance: MONTELUKAST SODIUM
     Dosage: 10 MG, DAILY
     Route: 048
     Dates: start: 2018, end: 20181013
  3. DESALEX [Suspect]
     Active Substance: DESLORATADINE
     Indication: DRUG ERUPTION
     Dosage: 5 MG, 1X/DAY
     Route: 048
     Dates: start: 20180903, end: 20181106
  4. MONTELUKAST [Suspect]
     Active Substance: MONTELUKAST SODIUM
     Indication: BRONCHITIS
     Dosage: 10 MG, DAILY
     Route: 048
     Dates: start: 20180918, end: 2018
  5. LYRICA [Suspect]
     Active Substance: PREGABALIN
     Dosage: 75 MG, 2X/DAY
     Route: 048
     Dates: start: 20180731, end: 20180904

REACTIONS (4)
  - Alopecia areata [Recovering/Resolving]
  - Depression [Recovered/Resolved]
  - Drug eruption [Recovered/Resolved]
  - Bronchitis [Recovered/Resolved]

NARRATIVE: CASE EVENT DATE: 201809
